FAERS Safety Report 9942268 (Version 5)
Quarter: 2014Q2

REPORT INFORMATION
  Report Type: Spontaneous
  Country: GB (occurrence: GB)
  Receive Date: 20140303
  Receipt Date: 20140428
  Transmission Date: 20141212
  Serious: Yes (Disabling)
  Sender: FDA-Public Use
  Company Number: PHFR2014GB000784

PATIENT
  Age: 37 Year
  Sex: Female

DRUGS (4)
  1. CLOZARIL [Suspect]
     Dosage: 250 MG, DAILY
     Route: 048
     Dates: start: 20050407, end: 201312
  2. VALPROIC ACID [Suspect]
     Indication: AFFECTIVE DISORDER
     Dosage: 500 MG, DAILY
     Route: 048
     Dates: end: 201312
  3. OLANZAPINE [Suspect]
     Indication: SCHIZOPHRENIA
     Dosage: 10 MG, DAILY
     Route: 048
     Dates: start: 20131217
  4. CLOZAPINE [Concomitant]
     Indication: SCHIZOPHRENIA
     Dosage: UNK
     Route: 048

REACTIONS (2)
  - Anxiety [Recovering/Resolving]
  - Alopecia [Not Recovered/Not Resolved]
